FAERS Safety Report 9515981 (Version 1)
Quarter: 2013Q3

REPORT INFORMATION
  Report Type: Spontaneous
  Country: US (occurrence: US)
  Receive Date: 20130911
  Receipt Date: 20130911
  Transmission Date: 20140515
  Serious: No
  Sender: FDA-Public Use
  Company Number: US-BAYER-2013-108204

PATIENT
  Age: 79 Year
  Sex: Female

DRUGS (1)
  1. AVELOX [Suspect]
     Indication: INFECTION
     Dosage: UNK
     Route: 048
     Dates: start: 20130822, end: 20130822

REACTIONS (1)
  - Nausea [Recovered/Resolved]
